FAERS Safety Report 19517563 (Version 2)
Quarter: 2022Q2

REPORT INFORMATION
  Report Type: Spontaneous
  Country: GB (occurrence: GB)
  Receive Date: 20210712
  Receipt Date: 20220405
  Transmission Date: 20220720
  Serious: Yes (Disabling)
  Sender: FDA-Public Use
  Company Number: GB-MHRA-EYC 00254980

PATIENT
  Age: 30 Year
  Sex: Female
  Weight: 44.45 kg

DRUGS (1)
  1. CITALOPRAM [Suspect]
     Active Substance: CITALOPRAM HYDROBROMIDE
     Indication: Depression suicidal
     Dosage: 30 UNK
     Route: 048
     Dates: start: 201808, end: 20200120

REACTIONS (1)
  - Petit mal epilepsy [Recovered/Resolved with Sequelae]

NARRATIVE: CASE EVENT DATE: 20180801
